FAERS Safety Report 7868197-9 (Version None)
Quarter: 2011Q4

REPORT INFORMATION
  Report Type: 
  Country: None (occurrence: None)
  Receive Date: 20111028
  Receipt Date: 20111019
  Transmission Date: 20120403
  Serious: Yes (Other)
  Sender: FDA-Public Use
  Company Number: PHHY2011GB92950

PATIENT
  Age: 46 Year

DRUGS (5)
  1. MORPHINE [Suspect]
     Dosage: UNK UKN, UNK
  2. PROPOFOL [Suspect]
     Dosage: UNK UKN, UNK
     Route: 042
  3. HALOPERIDOL [Suspect]
     Dosage: UNK UKN, UNK
  4. BENZODIAZEPINES [Suspect]
     Dosage: UNK UKN, UNK
  5. GABAPENTIN [Suspect]
     Dosage: UNK UKN, UNK

REACTIONS (3)
  - RHABDOMYOLYSIS [None]
  - STAPHYLOCOCCAL SEPSIS [None]
  - HYPOPHOSPHATAEMIA [None]
